FAERS Safety Report 4667882-X (Version None)
Quarter: 2005Q2

REPORT INFORMATION
  Report Type: 
  Country: None (occurrence: None)
  Receive Date: 20050520
  Receipt Date: 20050429
  Transmission Date: 20051028
  Serious: Yes (Hospitalization)
  Sender: FDA-Public Use
  Company Number: CH-SANOFI-SYNTHELABO-A01200503291

PATIENT
  Age: 79 Year
  Sex: Female

DRUGS (3)
  1. OXALIPLATIN [Suspect]
     Indication: COLORECTAL CANCER
     Dosage: 100 MG/M2 Q2W THEN Q4W
     Route: 040
  2. LEUCOVORIN CALCIUM [Concomitant]
     Indication: COLORECTAL CANCER
     Dosage: 100 MG/M2 Q2W THEN Q4W
     Route: 040
  3. FLUOROURACIL [Concomitant]
     Indication: COLORECTAL CANCER
     Dosage: 400 MG/M2 IV BOLUS AND 2400 MG/M2 46H INFUSION VIA PORTABLE PUMP
     Route: 042

REACTIONS (10)
  - BACK PAIN [None]
  - CHILLS [None]
  - COOMBS POSITIVE HAEMOLYTIC ANAEMIA [None]
  - FEELING ABNORMAL [None]
  - HAEMORRHAGE [None]
  - NEUTROPENIA [None]
  - PANCYTOPENIA [None]
  - PYREXIA [None]
  - THROMBOCYTOPENIC PURPURA [None]
  - VOMITING [None]
